FAERS Safety Report 12286942 (Version 3)
Quarter: 2016Q2

REPORT INFORMATION
  Report Type: Spontaneous
  Country: US (occurrence: US)
  Receive Date: 20160420
  Receipt Date: 20160516
  Transmission Date: 20160815
  Serious: Yes (Hospitalization, Other)
  Sender: FDA-Public Use
  Company Number: US-PFIZER INC-2016201726

PATIENT
  Age: 76 Year
  Sex: Female
  Weight: 59 kg

DRUGS (8)
  1. CYTOXAN [Suspect]
     Active Substance: CYCLOPHOSPHAMIDE
     Indication: BREAST CANCER METASTATIC
     Dosage: 600 MG/M2, CYCLIC
     Dates: start: 20140828
  2. CYTOXAN [Suspect]
     Active Substance: CYCLOPHOSPHAMIDE
     Dosage: 600 MG/M2, CYCLIC
     Dates: start: 20141022
  3. DOCETAXEL. [Suspect]
     Active Substance: DOCETAXEL
     Dosage: 75 MG/M2, CYCLIC (CYCLE 3)
     Dates: start: 20141022
  4. NEUPOGEN [Concomitant]
     Active Substance: FILGRASTIM
     Indication: SUPPORTIVE CARE
     Dosage: UNK
     Dates: start: 20140828
  5. DOCETAXEL. [Suspect]
     Active Substance: DOCETAXEL
     Indication: BREAST CANCER METASTATIC
     Dosage: 75 MG/M2, CYCLIC (CYCLE 1)
     Dates: start: 20140828
  6. DOCETAXEL. [Suspect]
     Active Substance: DOCETAXEL
     Dosage: 75 MG/M2, CYCLIC (CYCLE 1)
     Dates: start: 20140918
  7. CYTOXAN [Suspect]
     Active Substance: CYCLOPHOSPHAMIDE
     Dosage: 600 MG/M2, CYCLIC
     Dates: start: 20140918
  8. NEULASTA [Concomitant]
     Active Substance: PEGFILGRASTIM
     Indication: SUPPORTIVE CARE
     Dosage: UNK
     Dates: start: 20140918

REACTIONS (8)
  - Osteoporosis [Unknown]
  - Small intestinal obstruction [Recovered/Resolved]
  - Clostridium difficile colitis [Recovered/Resolved]
  - Thyroid mass [Not Recovered/Not Resolved]
  - Febrile neutropenia [Unknown]
  - Osteopenia [Unknown]
  - Urinary tract infection [Unknown]
  - Neuropathy peripheral [Unknown]

NARRATIVE: CASE EVENT DATE: 20140930
